FAERS Safety Report 20199538 (Version 1)
Quarter: 2021Q4

REPORT INFORMATION
  Report Type: Spontaneous
  Country: US (occurrence: US)
  Receive Date: 20211217
  Receipt Date: 20211217
  Transmission Date: 20220303
  Serious: Yes (Hospitalization, Other)
  Sender: FDA-Public Use
  Company Number: US-JNJFOC-20211037274

PATIENT
  Sex: Female
  Weight: 113.50 kg

DRUGS (1)
  1. XARELTO [Suspect]
     Active Substance: RIVAROXABAN
     Indication: Product used for unknown indication
     Route: 048

REACTIONS (4)
  - Pulmonary embolism [Recovering/Resolving]
  - Intracardiac thrombus [Recovering/Resolving]
  - Hospitalisation [Unknown]
  - Adverse event [Unknown]
